FAERS Safety Report 18358340 (Version 1)
Quarter: 2020Q4

REPORT INFORMATION
  Report Type: Spontaneous
  Country: US (occurrence: US)
  Receive Date: 20201008
  Receipt Date: 20201008
  Transmission Date: 20210114
  Serious: No
  Sender: FDA-Public Use
  Company Number: US-TERSERA THERAPEUTICS LLC-2020TRS002324

PATIENT

DRUGS (1)
  1. VARUBI [Suspect]
     Active Substance: ROLAPITANT
     Indication: OVARIAN CANCER
     Dosage: 180 MG, EVERY 3 WEEKS (2 TABLETS BY MOUTH 1-2 HOURS)
     Route: 048
     Dates: start: 20200323

REACTIONS (1)
  - Weight increased [Unknown]
